FAERS Safety Report 13947798 (Version 1)
Quarter: 2017Q3

REPORT INFORMATION
  Report Type: Spontaneous
  Country: AU (occurrence: AU)
  Receive Date: 20170908
  Receipt Date: 20170908
  Transmission Date: 20171128
  Serious: Yes (Hospitalization)
  Sender: FDA-Public Use
  Company Number: AU-VISTAPHARM, INC.-VER201708-000454

PATIENT
  Age: 44 Year
  Sex: Male

DRUGS (1)
  1. HYDROCODONE AND ACETAMINOPHEN [Suspect]
     Active Substance: ACETAMINOPHEN\HYDROCODONE

REACTIONS (4)
  - Acidosis [Recovered/Resolved]
  - Lactic acidosis [Unknown]
  - Loss of consciousness [Unknown]
  - Overdose [Unknown]
